FAERS Safety Report 5994888-0 (Version None)
Quarter: 2008Q4

REPORT INFORMATION
  Report Type: 
  Country: None (occurrence: None)
  Receive Date: 20081210
  Receipt Date: 20081202
  Transmission Date: 20090506
  Serious: Yes (Death)
  Sender: FDA-Public Use
  Company Number: 2008JP004598

PATIENT
  Age: 53 Year
  Sex: Male
  Weight: 56 kg

DRUGS (9)
  1. FUNGUARD (MICAFUNGIN INJECTION) FUNGUARD (MICAFUNGIN) INJECTION [Suspect]
     Indication: INFECTION PROPHYLAXIS
     Dosage: 50 MG, UID/QD, IV DRIP
     Route: 041
     Dates: start: 20080412, end: 20080514
  2. ITRACONAZOLE [Concomitant]
  3. CYLOCIDE-N (CYTARABINE) [Concomitant]
  4. CYCLOPHOSPHAMIDE [Concomitant]
  5. METHOTREXATE [Concomitant]
  6. CYCLOSPORINE [Concomitant]
  7. NEUPOGEN [Concomitant]
  8. VENOGLOBULIN-I [Concomitant]
  9. STRONGER NEO MINOPHAGEN C (AMINOACETIC ACID, GLYCRRHIZIC ACID, CYSTEIN [Concomitant]

REACTIONS (7)
  - ALANINE AMINOTRANSFERASE INCREASED [None]
  - BLOOD PRESSURE DECREASED [None]
  - BONE MARROW FAILURE [None]
  - DRUG INEFFECTIVE [None]
  - LIVER DISORDER [None]
  - TRANSPLANT FAILURE [None]
  - TRICHOSPORON INFECTION [None]
